FAERS Safety Report 25687029 (Version 1)
Quarter: 2025Q3

REPORT INFORMATION
  Report Type: Spontaneous
  Country: US (occurrence: US)
  Receive Date: 20250816
  Receipt Date: 20250816
  Transmission Date: 20251021
  Serious: Yes (Hospitalization, Other)
  Sender: MSN LABORATORIES PRIVATE LIMITED
  Company Number: US-MSNLABS-2025MSNLIT02207

PATIENT

DRUGS (1)
  1. FLUPHENAZINE [Suspect]
     Active Substance: FLUPHENAZINE
     Indication: Schizoaffective disorder
     Route: 065

REACTIONS (2)
  - Delusion [Recovering/Resolving]
  - Hyperprolactinaemia [Recovering/Resolving]
